FAERS Safety Report 25588099 (Version 1)
Quarter: 2025Q3

REPORT INFORMATION
  Report Type: Report from Study
  Country: US (occurrence: US)
  Receive Date: 20250722
  Receipt Date: 20250722
  Transmission Date: 20251020
  Serious: Yes (Other)
  Sender: ABBVIE
  Company Number: US-ABBVIE-6375784

PATIENT
  Age: 73 Year
  Sex: Female

DRUGS (1)
  1. VENCLEXTA [Suspect]
     Active Substance: VENETOCLAX
     Indication: Acute myeloid leukaemia
     Dosage: TAKE 1 TABLET BY MOUTH ONCE DAILY ON DAYS 1-5 OF EACH 35 DAY CYCLE
     Route: 048
     Dates: start: 20221118

REACTIONS (5)
  - Vascular stent insertion [Unknown]
  - Diarrhoea [Unknown]
  - Fall [Unknown]
  - Constipation [Unknown]
  - Contusion [Unknown]

NARRATIVE: CASE EVENT DATE: 20250501
